FAERS Safety Report 18188871 (Version 2)
Quarter: 2020Q3

REPORT INFORMATION
  Report Type: Other
  Country: US (occurrence: US)
  Receive Date: 20200825
  Receipt Date: 20200910
  Transmission Date: 20201103
  Serious: Yes (Hospitalization, Other)
  Sender: FDA-Public Use
  Company Number: US-ROCHE-2662535

PATIENT
  Age: 59 Year
  Sex: Female
  Weight: 86.71 kg

DRUGS (27)
  1. PANTOPRAZOLE [Concomitant]
     Active Substance: PANTOPRAZOLE
     Indication: GASTROOESOPHAGEAL REFLUX DISEASE
     Dosage: BEFORE EATING ;ONGOING: YES
     Route: 048
  2. VENTOLIN HFA [Concomitant]
     Active Substance: ALBUTEROL SULFATE
     Dosage: 2 PUFFS ;ONGOING: YES
  3. LOSARTAN POTASSIUM. [Concomitant]
     Active Substance: LOSARTAN POTASSIUM
     Dosage: YES
     Route: 048
     Dates: start: 201903
  4. ALENDRONATE [Concomitant]
     Active Substance: ALENDRONATE SODIUM
     Dosage: YES
     Route: 048
  5. MESALAMINE. [Concomitant]
     Active Substance: MESALAMINE
     Dosage: ONGOING? YES
     Route: 048
     Dates: start: 2019
  6. MONTELUKAST [Concomitant]
     Active Substance: MONTELUKAST SODIUM
     Indication: HYPERTENSION
     Dosage: YES
     Route: 048
     Dates: start: 201903
  7. MESALAMINE. [Concomitant]
     Active Substance: MESALAMINE
     Dosage: ONGOING? YES
     Route: 048
  8. GABAPENTIN. [Concomitant]
     Active Substance: GABAPENTIN
     Dosage: 300 MG CAPSULES, 3 MORNING, 3 LUNCH, 3?4 BEDTIME; ONGOING? YES
     Route: 048
  9. COD LIVER OIL [Concomitant]
     Active Substance: COD LIVER OIL
     Dosage: ONGOING? YES
     Route: 048
     Dates: start: 2019
  10. VITAMIN D3 [Concomitant]
     Active Substance: CHOLECALCIFEROL
     Dosage: 2?3 PILLS ;ONGOING: YES
     Route: 048
  11. OCREVUS [Suspect]
     Active Substance: OCRELIZUMAB
     Dosage: 30 MG/ML IV SOLUTION
     Route: 042
     Dates: start: 20190225
  12. GABAPENTIN. [Concomitant]
     Active Substance: GABAPENTIN
     Indication: NEURALGIA
     Dosage: MORNING ;ONGOING: YES
     Route: 048
  13. RANITIDINE. [Concomitant]
     Active Substance: RANITIDINE
     Route: 048
  14. OCREVUS [Suspect]
     Active Substance: OCRELIZUMAB
     Dosage: 300 MG ON DAY 1 AND DAY 15
     Route: 042
  15. LOSARTAN POTASSIUM. [Concomitant]
     Active Substance: LOSARTAN POTASSIUM
     Route: 048
  16. GABAPENTIN. [Concomitant]
     Active Substance: GABAPENTIN
     Dosage: AFTERNOON ;ONGOING: YES
     Route: 048
  17. AMANTADINE. [Concomitant]
     Active Substance: AMANTADINE HYDROCHLORIDE
     Indication: FATIGUE
     Dosage: YES?TAKE 100 MG TAB 9100 MG TOTAL) BY MOUTH TWICE DAILY.
     Route: 048
  18. TOLTERODINE TARTRATE. [Concomitant]
     Active Substance: TOLTERODINE TARTRATE
     Indication: HYPERTONIC BLADDER
     Dosage: ONGOING? YES
     Route: 048
  19. GLUCOSAMINE SULFATE POTASSIUM CHLORIDE [Concomitant]
     Active Substance: GLUCOSAMINE SULFATE POTASSIUM CHLORIDE
     Dosage: YES
     Route: 048
  20. BACLOFEN. [Concomitant]
     Active Substance: BACLOFEN
     Indication: MUSCLE SPASMS
     Dosage: ONGOING? YES
     Route: 048
  21. OCREVUS [Suspect]
     Active Substance: OCRELIZUMAB
     Indication: PROGRESSIVE MULTIPLE SCLEROSIS
     Dosage: ONGOING: UNKNOWN
     Route: 042
     Dates: start: 20180719
  22. OCREVUS [Suspect]
     Active Substance: OCRELIZUMAB
     Dosage: INFUSE 600 MG IV EVERY 6 MONTHS
     Route: 042
  23. CARVEDILOL. [Concomitant]
     Active Substance: CARVEDILOL
     Dosage: YES
     Route: 048
     Dates: start: 201903
  24. GABAPENTIN. [Concomitant]
     Active Substance: GABAPENTIN
     Dosage: EVENING ;ONGOING: YES
     Route: 048
  25. CRANBERRY. [Concomitant]
     Active Substance: CRANBERRY
     Dosage: YES
     Route: 048
  26. VITAMIN C [Concomitant]
     Active Substance: ASCORBIC ACID
     Dosage: YES
     Route: 048
  27. TOLTERODINE [Concomitant]
     Active Substance: TOLTERODINE
     Dosage: 24 HOUR
     Route: 048

REACTIONS (6)
  - Fatigue [Recovered/Resolved]
  - Hypertension [Recovered/Resolved]
  - Fall [Unknown]
  - Respiratory arrest [Recovered/Resolved]
  - Asthenia [Recovered/Resolved]
  - Neuralgia [Not Recovered/Not Resolved]

NARRATIVE: CASE EVENT DATE: 2019
